FAERS Safety Report 7821904-3 (Version None)
Quarter: 2011Q4

REPORT INFORMATION
  Report Type: 
  Country: None (occurrence: None)
  Receive Date: 20111018
  Receipt Date: 20110125
  Transmission Date: 20120403
  Serious: No
  Sender: FDA-Public Use
  Company Number: US-ASTRAZENECA-2011SE04606

PATIENT
  Age: 84 Year
  Sex: Female

DRUGS (4)
  1. SPIRIVA [Concomitant]
  2. BYSTOLIC [Concomitant]
  3. SYMBICORT [Suspect]
     Dosage: 160/4.5 MCG TWO PUFFS TWICE A DAY
     Route: 055
  4. SUDAFED 12 HOUR [Concomitant]

REACTIONS (1)
  - CONFUSIONAL STATE [None]
